FAERS Safety Report 7078732-9 (Version None)
Quarter: 2010Q4

REPORT INFORMATION
  Report Type: 
  Country: None (occurrence: None)
  Receive Date: 20101102
  Receipt Date: 20101026
  Transmission Date: 20110411
  Serious: Yes (Disabling)
  Sender: FDA-Public Use
  Company Number: JP-PFIZER INC-2010117702

PATIENT
  Age: 70 Year
  Sex: Female
  Weight: 41.2 kg

DRUGS (8)
  1. SUNITINIB MALATE [Suspect]
     Dosage: 37.5 MG, 1X/DAY
     Route: 048
     Dates: start: 20091102
  2. TAKEPRON [Concomitant]
     Dosage: 30 MG, 1X/DAY
     Route: 048
     Dates: start: 20091112
  3. PRIMPERAN [Concomitant]
     Dosage: 5 MG, 3X/DAY
     Route: 048
     Dates: start: 20091112
  4. CANDESARTAN CILEXETIL [Concomitant]
     Dosage: 4 MG, 1X/DAY
     Route: 048
     Dates: start: 20091116
  5. GLYCYRON [Concomitant]
     Dosage: 25 MG, 3X/DAY
     Route: 048
     Dates: start: 20091116
  6. DERMOVATE [Concomitant]
     Dosage: UNK
     Route: 062
     Dates: start: 20091201
  7. KERATINAMIN [Concomitant]
     Dosage: UNK
     Route: 062
     Dates: start: 20091215
  8. HIRUDOID [Concomitant]
     Dosage: UNK
     Route: 062
     Dates: start: 20091221

REACTIONS (1)
  - CEREBRAL HAEMORRHAGE [None]
